FAERS Safety Report 7514712-4 (Version None)
Quarter: 2011Q2

REPORT INFORMATION
  Report Type: 
  Country: None (occurrence: None)
  Receive Date: 20110601
  Receipt Date: 20110420
  Transmission Date: 20111010
  Serious: Yes (Other)
  Sender: FDA-Public Use
  Company Number: US-BAYER-201032768NA

PATIENT
  Age: 28 Year
  Sex: Female
  Weight: 61.224 kg

DRUGS (7)
  1. LEVAQUIN [Concomitant]
     Dosage: UNK
     Dates: start: 20081214
  2. PHENERGAN HCL [Concomitant]
     Dosage: 25 MG, PRN
     Route: 048
  3. PROTONIX [Concomitant]
     Dosage: DAILY DOSE 40 MG
     Route: 048
  4. YAZ [Suspect]
     Indication: CONTRACEPTION
     Dosage: UNK UNK, UNK
     Route: 048
     Dates: start: 20070901, end: 20091001
  5. METRONIDAZOLE [Concomitant]
     Dosage: 500 MG, UNK
     Dates: start: 20080707
  6. ACYCLOVIR [Concomitant]
     Indication: HERPES VIRUS INFECTION
     Dosage: UNK
     Dates: start: 20080701
  7. THERAFLU [Concomitant]

REACTIONS (4)
  - GALLBLADDER DISORDER [None]
  - CHOLECYSTITIS CHRONIC [None]
  - CHOLELITHIASIS [None]
  - ABDOMINAL PAIN UPPER [None]
